FAERS Safety Report 16166518 (Version 2)
Quarter: 2019Q2

REPORT INFORMATION
  Report Type: Spontaneous
  Country: US (occurrence: US)
  Receive Date: 20190407
  Receipt Date: 20190513
  Transmission Date: 20190711
  Serious: No
  Sender: FDA-Public Use
  Company Number: US-TEVA-2019-US-1036535

PATIENT
  Sex: Male

DRUGS (1)
  1. AJOVY [Suspect]
     Active Substance: FREMANEZUMAB-VFRM
     Indication: MIGRAINE
     Dosage: AJOYV HAS BEEN THE ONLY NEW MEDICATION HE HAS STARTED IN THE PAST YEAR, HAD ONLY TWO INJECTIONS.
     Route: 058
     Dates: start: 201901

REACTIONS (3)
  - Memory impairment [Unknown]
  - Aphasia [Unknown]
  - Speech disorder [Unknown]
